FAERS Safety Report 12750661 (Version 5)
Quarter: 2018Q4

REPORT INFORMATION
  Report Type: Spontaneous
  Country: US (occurrence: US)
  Receive Date: 20160916
  Receipt Date: 20181106
  Transmission Date: 20190204
  Serious: No
  Sender: FDA-Public Use
  Company Number: US-ACTELION-A-NJ2016-141996

PATIENT
  Age: 29 Year
  Sex: Female
  Weight: 72.56 kg

DRUGS (5)
  1. ADCIRCA [Concomitant]
     Active Substance: TADALAFIL
  2. VELETRI [Suspect]
     Active Substance: EPOPROSTENOL
     Dosage: 58 NG/KG, PER MIN
     Route: 042
  3. OPSUMIT [Concomitant]
     Active Substance: MACITENTAN
  4. VELETRI [Suspect]
     Active Substance: EPOPROSTENOL
     Indication: PULMONARY ARTERIAL HYPERTENSION
     Dosage: 6 NG/KG, PER MIN
     Route: 042
     Dates: start: 20160901
  5. AMLODIPINE [Concomitant]
     Active Substance: AMLODIPINE BESYLATE

REACTIONS (16)
  - Dyspepsia [Unknown]
  - Fatigue [Unknown]
  - Myalgia [Unknown]
  - Catheter site erythema [Unknown]
  - Hypersensitivity [Unknown]
  - Neuropathy peripheral [Unknown]
  - Bronchitis [Unknown]
  - Headache [Unknown]
  - Decreased appetite [Unknown]
  - Application site erythema [Unknown]
  - Tinnitus [Unknown]
  - Pain in jaw [Unknown]
  - Application site pruritus [Unknown]
  - Rash [Unknown]
  - Catheter site pain [Unknown]
  - Diarrhoea [Unknown]
